FAERS Safety Report 5218088-7 (Version None)
Quarter: 2007Q1

REPORT INFORMATION
  Report Type: 
  Country: None (occurrence: None)
  Receive Date: 20070124
  Receipt Date: 20070116
  Transmission Date: 20070707
  Serious: Yes (Other)
  Sender: FDA-Public Use
  Company Number: JP-PFIZER INC-2007004822

PATIENT
  Age: 55 Year
  Sex: Female

DRUGS (2)
  1. NORVASC [Suspect]
     Dosage: DAILY DOSE:5MG
     Route: 048
     Dates: start: 20051028, end: 20061202
  2. LAFUTIDINE [Concomitant]
     Route: 048
     Dates: start: 20060728, end: 20061202

REACTIONS (1)
  - PARKINSONISM [None]
